FAERS Safety Report 12417615 (Version 6)
Quarter: 2017Q2

REPORT INFORMATION
  Report Type: Report from Study
  Country: BR (occurrence: BR)
  Receive Date: 20160530
  Receipt Date: 20170413
  Transmission Date: 20170830
  Serious: Yes (Hospitalization, Other)
  Sender: FDA-Public Use
  Company Number: PHHY2016BR072363

PATIENT
  Sex: Male
  Weight: 70 kg

DRUGS (2)
  1. CABERGOLINA [Concomitant]
     Active Substance: CABERGOLINE
     Indication: PRODUCT USED FOR UNKNOWN INDICATION
     Dosage: UNK
     Route: 065
  2. SANDOSTATIN LAR DEPOT [Suspect]
     Active Substance: OCTREOTIDE ACETATE
     Indication: ACROMEGALY
     Dosage: 30 MG, QMO (1 INJCTION EVERY 28 DAYS)
     Route: 030
     Dates: start: 2010

REACTIONS (13)
  - Amnesia [Unknown]
  - Fatigue [Unknown]
  - Suture related complication [Unknown]
  - Asthenia [Unknown]
  - Depressed mood [Unknown]
  - Loss of consciousness [Unknown]
  - Weight decreased [Unknown]
  - Thyroid disorder [Unknown]
  - Fall [Unknown]
  - Nodule [Unknown]
  - Muscular weakness [Unknown]
  - Dyspnoea [Unknown]
  - Blood pressure increased [Unknown]
